FAERS Safety Report 15339651 (Version 2)
Quarter: 2018Q4

REPORT INFORMATION
  Report Type: Spontaneous
  Country: US (occurrence: US)
  Receive Date: 20180831
  Receipt Date: 20181116
  Transmission Date: 20190204
  Serious: No
  Sender: FDA-Public Use
  Company Number: US-BAUSCH-BL-2018-016960

PATIENT
  Sex: Female
  Weight: 68.1 kg

DRUGS (3)
  1. LACRISERT [Suspect]
     Active Substance: HYDROXYPROPYL CELLULOSE
     Indication: DRY EYE
     Dosage: ONE OPHTHALMIC INSERT IN EACH EYE ONCE DAILY
     Route: 047
     Dates: start: 1987
  2. LACRISERT [Suspect]
     Active Substance: HYDROXYPROPYL CELLULOSE
     Dosage: ONE OPHTHALMIC INSERT IN EACH EYE ONCE DAILY; NEW BOX
     Route: 047
  3. SYNTHROID [Concomitant]
     Active Substance: LEVOTHYROXINE SODIUM
     Indication: PRODUCT USED FOR UNKNOWN INDICATION
     Route: 065

REACTIONS (5)
  - Product quality issue [Recovering/Resolving]
  - Wrong technique in product usage process [Recovering/Resolving]
  - Swelling of eyelid [Unknown]
  - Product deposit [Recovering/Resolving]
  - Skin swelling [Recovering/Resolving]

NARRATIVE: CASE EVENT DATE: 2018
